FAERS Safety Report 7995906-0 (Version None)
Quarter: 2011Q4

REPORT INFORMATION
  Report Type: 
  Country: None (occurrence: None)
  Receive Date: 20111220
  Receipt Date: 20111214
  Transmission Date: 20120403
  Serious: Yes (Other)
  Sender: FDA-Public Use
  Company Number: US-ROCHE-802992

PATIENT
  Sex: Female
  Weight: 77.18 kg

DRUGS (3)
  1. ACCUTANE [Suspect]
  2. ACCUTANE [Suspect]
     Route: 065
     Dates: start: 19991206, end: 20000401
  3. ACCUTANE [Suspect]
     Indication: ACNE
     Route: 065
     Dates: start: 19990106, end: 19990601

REACTIONS (6)
  - DRY EYE [None]
  - NASAL DRYNESS [None]
  - COLITIS ULCERATIVE [None]
  - ECZEMA [None]
  - EMOTIONAL DISTRESS [None]
  - HEADACHE [None]
